FAERS Safety Report 9641168 (Version 2)
Quarter: 2013Q4

REPORT INFORMATION
  Report Type: Spontaneous
  Country: US (occurrence: US)
  Receive Date: 20131023
  Receipt Date: 20131217
  Transmission Date: 20140711
  Serious: Yes (Hospitalization)
  Sender: FDA-Public Use
  Company Number: US-PFIZER INC-2013300496

PATIENT
  Age: 73 Year
  Sex: Male
  Weight: 65.76 kg

DRUGS (5)
  1. LYRICA [Suspect]
     Indication: NEUROPATHY PERIPHERAL
     Dosage: 150 MG, 2X/DAY
     Dates: start: 2008
  2. LYRICA [Suspect]
     Indication: PAIN
  3. TRAMADOL [Suspect]
     Indication: PAIN
     Dosage: 50 MG, 2X/DAY
  4. METFORMIN [Concomitant]
     Indication: DIABETES MELLITUS
     Dosage: 500 MG, 2X/DAY
  5. PLAVIX [Concomitant]
     Indication: ANTICOAGULANT THERAPY
     Dosage: 75 MG, UNK

REACTIONS (2)
  - Fall [Unknown]
  - Dysuria [Unknown]
